FAERS Safety Report 25423226 (Version 3)
Quarter: 2025Q2

REPORT INFORMATION
  Report Type: Spontaneous
  Country: US (occurrence: US)
  Receive Date: 20250611
  Receipt Date: 20250625
  Transmission Date: 20250717
  Serious: Yes (Life-Threatening, Disabling, Other)
  Sender: PFIZER
  Company Number: US-PFIZER INC-202500117895

PATIENT
  Age: 82 Year
  Sex: Male
  Weight: 86.18 kg

DRUGS (1)
  1. PAXLOVID [Suspect]
     Active Substance: NIRMATRELVIR\RITONAVIR
     Indication: COVID-19 treatment
     Route: 048
     Dates: start: 20250606, end: 20250607

REACTIONS (4)
  - Near death experience [Unknown]
  - Diarrhoea [Recovered/Resolved]
  - Dehydration [Recovering/Resolving]
  - Illness [Unknown]

NARRATIVE: CASE EVENT DATE: 20250601
